FAERS Safety Report 19904618 (Version 1)
Quarter: 2021Q4

REPORT INFORMATION
  Report Type: Spontaneous
  Country: US (occurrence: US)
  Receive Date: 20211001
  Receipt Date: 20211001
  Transmission Date: 20220303
  Serious: Yes (Hospitalization, Other)
  Sender: FDA-Public Use
  Company Number: US-ASTELLAS-2021US036593

PATIENT
  Age: 77 Year
  Sex: Male

DRUGS (1)
  1. MYRBETRIQ [Suspect]
     Active Substance: MIRABEGRON
     Indication: Product used for unknown indication
     Route: 065
     Dates: start: 20210823, end: 202109

REACTIONS (3)
  - Urinary tract infection [Unknown]
  - Urinary retention [Unknown]
  - Device occlusion [Unknown]

NARRATIVE: CASE EVENT DATE: 20210901
